FAERS Safety Report 15839947 (Version 1)
Quarter: 2019Q1

REPORT INFORMATION
  Report Type: Report from Study
  Country: US (occurrence: US)
  Receive Date: 20190117
  Receipt Date: 20190117
  Transmission Date: 20190417
  Serious: Yes (Hospitalization)
  Sender: FDA-Public Use
  Company Number: US-ACTELION-A-US2016-144858

PATIENT
  Age: 49 Year
  Sex: Female
  Weight: 72.56 kg

DRUGS (18)
  1. VELETRI [Suspect]
     Active Substance: EPOPROSTENOL
     Dosage: 17 NG/KG, PER MIN
     Route: 042
     Dates: start: 20160210
  2. GABAPENTIN. [Concomitant]
     Active Substance: GABAPENTIN
     Dosage: 300 MG, UNK
     Dates: start: 20161223
  3. OXYCODONE [Concomitant]
     Active Substance: OXYCODONE
     Dosage: 10 MG, UNK
     Dates: start: 20161223
  4. OPSUMIT [Suspect]
     Active Substance: MACITENTAN
     Indication: PULMONARY ARTERIAL HYPERTENSION
     Dosage: 10 MG, QD
     Route: 048
     Dates: start: 201606
  5. UPTRAVI [Suspect]
     Active Substance: SELEXIPAG
     Dosage: 1600 MCG, BID
     Route: 048
  6. PROTONIX [Concomitant]
     Active Substance: PANTOPRAZOLE SODIUM
     Dosage: 20 MG, UNK
     Dates: start: 20161223
  7. ARMOUR THYROID [Concomitant]
     Active Substance: THYROID, PORCINE
     Dosage: 45 MG, UNK
     Dates: start: 20161223
  8. SPIRONOLACTON [Concomitant]
     Active Substance: SPIRONOLACTONE
     Dosage: 50 MG, UNK
     Dates: start: 20161223
  9. UPTRAVI [Suspect]
     Active Substance: SELEXIPAG
     Dosage: UNK
     Route: 048
     Dates: start: 20160915
  10. METOPROLOL. [Concomitant]
     Active Substance: METOPROLOL
     Dosage: 50 MG, UNK
  11. UPTRAVI [Suspect]
     Active Substance: SELEXIPAG
     Indication: PULMONARY ARTERIAL HYPERTENSION
     Dosage: 1400 MCG, BID
     Route: 048
  12. ZETIA [Concomitant]
     Active Substance: EZETIMIBE
     Dosage: 10 MG, UNK
     Dates: start: 20161223
  13. VELETRI [Suspect]
     Active Substance: EPOPROSTENOL
     Indication: PULMONARY ARTERIAL HYPERTENSION
     Dosage: 20 NG/KG, PER MIN
     Route: 042
     Dates: start: 20160210
  14. ADCIRCA [Concomitant]
     Active Substance: TADALAFIL
     Dosage: UNK
     Dates: start: 20161023
  15. POTASSIUM CHLORIDE. [Concomitant]
     Active Substance: POTASSIUM CHLORIDE
     Dosage: 10 MEQ, 2 @ DAY
     Dates: start: 20161223
  16. UPTRAVI [Suspect]
     Active Substance: SELEXIPAG
     Dosage: 1200 MCG, BID
     Route: 048
  17. PROMETHAZINE [Concomitant]
     Active Substance: PROMETHAZINE\PROMETHAZINE HYDROCHLORIDE
     Dosage: 50 MG, UNK
     Dates: start: 20161223
  18. ZYRTEC [Concomitant]
     Active Substance: CETIRIZINE HYDROCHLORIDE
     Dosage: 10 MG, UNK
     Dates: start: 20161223

REACTIONS (14)
  - Pain in jaw [Unknown]
  - Nausea [Unknown]
  - Hospitalisation [Unknown]
  - Feeling abnormal [Not Recovered/Not Resolved]
  - Arthralgia [Not Recovered/Not Resolved]
  - Hot flush [Not Recovered/Not Resolved]
  - Sinus headache [Unknown]
  - Dyspepsia [Unknown]
  - Back pain [Not Recovered/Not Resolved]
  - Headache [Unknown]
  - Myalgia [Unknown]
  - Pain in extremity [Unknown]
  - Dizziness [Not Recovered/Not Resolved]
  - Flushing [Not Recovered/Not Resolved]

NARRATIVE: CASE EVENT DATE: 20161012
